FAERS Safety Report 9500298 (Version 1)
Quarter: 2013Q1

REPORT INFORMATION
  Report Type: Spontaneous
  Country: US (occurrence: None)
  Receive Date: 20130124
  Receipt Date: 20130124
  Transmission Date: 20140127
  Serious: Yes (Other)
  Sender: FDA-Public Use
  Company Number: 2012PROUSA02158

PATIENT
  Age: 73 Year
  Sex: Male
  Weight: 75.7 kg

DRUGS (8)
  1. PROVENGE (SIPULEUCEL-T) SUSPENSION, 250ML [Suspect]
     Indication: PROSTATE CANCER METASTATIC
     Dosage: 250 ML, SINGLE, INTRAVENOUS
     Route: 042
     Dates: start: 20120917, end: 20120917
  2. ASPIRIN (ACETYLSALICYLIC ACID) [Concomitant]
  3. PRAVASTATIN SODIUM (PRAVASTATIN SODIUM) [Concomitant]
  4. ADVAIR (FLUTICONE PROPIONATE, SALMETEROL XINAFOATE) [Concomitant]
  5. LOSARTAN (LOSARTAN POTASSIUM) [Concomitant]
  6. EFFEXOR (VENLAFAXINE HYDROCHLORIDE) UNKNOWN [Concomitant]
  7. FISH OIL (FISH OIL) [Concomitant]
  8. VITAMIN B6 (PYRIDOXIE HYDROHLORIDE) [Concomitant]

REACTIONS (1)
  - Anaemia [None]
